FAERS Safety Report 21693420 (Version 4)
Quarter: 2023Q1

REPORT INFORMATION
  Report Type: Report from Study
  Country: BR (occurrence: BR)
  Receive Date: 20221207
  Receipt Date: 20230104
  Transmission Date: 20230418
  Serious: Yes (Other)
  Sender: FDA-Public Use
  Company Number: BR-002147023-NVSC2022BR281099

PATIENT
  Age: 46 Year
  Sex: Female

DRUGS (2)
  1. RIBOCICLIB [Suspect]
     Active Substance: RIBOCICLIB
     Indication: Product used for unknown indication
     Dosage: UNK
     Route: 065
  2. RIBOCICLIB [Suspect]
     Active Substance: RIBOCICLIB
     Dosage: UNK
     Route: 065

REACTIONS (16)
  - Inflammatory carcinoma of the breast [Unknown]
  - Metastases to spine [Unknown]
  - Drug ineffective [Unknown]
  - Pain [Unknown]
  - Neoplasm [Unknown]
  - Joint range of motion decreased [Unknown]
  - Spinal pain [Unknown]
  - Breast pain [Unknown]
  - Axillary pain [Unknown]
  - Pain in extremity [Not Recovered/Not Resolved]
  - Crying [Unknown]
  - Tumour pain [Unknown]
  - Skin lesion [Unknown]
  - Tumour marker increased [Unknown]
  - Insomnia [Unknown]
  - Pruritus [Unknown]

NARRATIVE: CASE EVENT DATE: 20221219
